FAERS Safety Report 5044863-8 (Version None)
Quarter: 2006Q3

REPORT INFORMATION
  Report Type: 
  Country: None (occurrence: None)
  Receive Date: 20060707
  Receipt Date: 20060626
  Transmission Date: 20061208
  Serious: Yes (Other)
  Sender: FDA-Public Use
  Company Number: US-BRISTOL-MYERS SQUIBB COMPANY-13428909

PATIENT
  Age: 17 Year
  Sex: Female

DRUGS (4)
  1. ETOPOSIDE [Suspect]
     Indication: ACUTE MYELOID LEUKAEMIA
  2. DAUNORUBICIN HCL [Suspect]
     Indication: ACUTE MYELOID LEUKAEMIA
  3. CYTARABINE [Suspect]
     Indication: ACUTE MYELOID LEUKAEMIA
  4. THIOGUANINE [Suspect]
     Indication: ACUTE MYELOID LEUKAEMIA

REACTIONS (2)
  - RENAL CELL CARCINOMA STAGE UNSPECIFIED [None]
  - TREATMENT RELATED SECONDARY MALIGNANCY [None]
